FAERS Safety Report 7951721-5 (Version None)
Quarter: 2011Q4

REPORT INFORMATION
  Report Type: 
  Country: None (occurrence: None)
  Receive Date: 20111130
  Receipt Date: 20111130
  Transmission Date: 20120403
  Serious: Yes (Other)
  Sender: FDA-Public Use
  Company Number: None

PATIENT
  Age: 41 Year
  Sex: Female
  Weight: 75.2971 kg

DRUGS (4)
  1. LEVONORGESTREL [Suspect]
     Indication: CONTRACEPTION
     Dosage: PATCH 12.5 CM
     Dates: start: 20110916, end: 20111104
  2. MAGNESIUM HYDROXIDE TAB [Concomitant]
  3. ZINC SUPPLEMENT [Concomitant]
  4. IBUPROFEN [Concomitant]

REACTIONS (4)
  - RETINAL VEIN OCCLUSION [None]
  - SCOTOMA [None]
  - PAPILLOEDEMA [None]
  - METAMORPHOPSIA [None]
